FAERS Safety Report 5563246-5 (Version None)
Quarter: 2007Q4

REPORT INFORMATION
  Report Type: 
  Country: None (occurrence: None)
  Receive Date: 20071214
  Receipt Date: 20071214
  Transmission Date: 20080405
  Serious: No
  Sender: FDA-Public Use
  Company Number: None

PATIENT
  Age: 2 Day
  Sex: Female
  Weight: 0.87 kg

DRUGS (2)
  1. SODIUM BICARBONATE [Suspect]
     Dosage: 0.75 MEQ X 1
     Dates: start: 20071031
  2. LIFESHIELD BRAND BRISTOJETS [Concomitant]

REACTIONS (2)
  - INTERCEPTED DRUG DISPENSING ERROR [None]
  - MEDICATION ERROR [None]
